FAERS Safety Report 6056899-9 (Version None)
Quarter: 2009Q1

REPORT INFORMATION
  Report Type: 
  Country: None (occurrence: None)
  Receive Date: 20090129
  Receipt Date: 20090120
  Transmission Date: 20090719
  Serious: Yes (Other)
  Sender: FDA-Public Use
  Company Number: B0555298A

PATIENT
  Age: 85 Year
  Sex: Female
  Weight: 80 kg

DRUGS (4)
  1. ARIXTRA [Suspect]
     Indication: THROMBOSIS PROPHYLAXIS
     Dosage: 2.5MG PER DAY
     Route: 058
     Dates: start: 20081124
  2. FLECAINE [Concomitant]
     Indication: EXTRASYSTOLES
     Route: 065
  3. VALSARTAN [Concomitant]
     Route: 065
  4. LASILIX [Concomitant]
     Route: 065
     Dates: start: 20081201

REACTIONS (2)
  - INCORRECT DRUG ADMINISTRATION DURATION [None]
  - RENAL FAILURE [None]
